FAERS Safety Report 7539936-1 (Version None)
Quarter: 2011Q2

REPORT INFORMATION
  Report Type: 
  Country: None (occurrence: None)
  Receive Date: 20110610
  Receipt Date: 20110526
  Transmission Date: 20111010
  Serious: Yes (Hospitalization, Other)
  Sender: FDA-Public Use
  Company Number: US-BAYER-2011-049795

PATIENT
  Age: 26 Year
  Sex: Female
  Weight: 81.633 kg

DRUGS (4)
  1. DROSPIRENONE AND ETHINYL ESTRADIOL [Suspect]
     Indication: CONTRACEPTION
     Dosage: 1 UNK, QD
     Route: 048
     Dates: start: 20080101, end: 20090101
  2. DROSPIRENONE AND ETHINYL ESTRADIOL [Suspect]
     Indication: DYSMENORRHOEA
  3. OXYCODONE HCL [Concomitant]
     Indication: PAIN
     Dosage: 5 MG, Q4HR
     Route: 048
     Dates: start: 20091025
  4. REGLAN [Concomitant]
     Indication: VOMITING
     Dosage: 10 MG, Q4HR
     Dates: start: 20091025

REACTIONS (2)
  - GALLBLADDER DISORDER [None]
  - ABDOMINAL PAIN [None]
